FAERS Safety Report 18588478 (Version 1)
Quarter: 2020Q4

REPORT INFORMATION
  Report Type: Spontaneous
  Country: US (occurrence: US)
  Receive Date: 20201207
  Receipt Date: 20201207
  Transmission Date: 20210114
  Serious: No
  Sender: FDA-Public Use
  Company Number: US-009507513-2012USA002139

PATIENT
  Age: 7 Decade
  Sex: Male

DRUGS (5)
  1. HYDROXYCHLOROQUINE SULFATE. [Concomitant]
     Active Substance: HYDROXYCHLOROQUINE SULFATE
     Indication: COVID-19
  2. ZINC (UNSPECIFIED) [Concomitant]
     Active Substance: ZINC
     Indication: COVID-19
  3. DOXYCYCLINE. [Concomitant]
     Active Substance: DOXYCYCLINE
     Indication: COVID-19
  4. FAMOTIDINE. [Concomitant]
     Active Substance: FAMOTIDINE
     Indication: COVID-19
  5. STROMECTOL [Suspect]
     Active Substance: IVERMECTIN
     Indication: COVID-19
     Route: 048

REACTIONS (1)
  - Product use in unapproved indication [Unknown]
